FAERS Safety Report 6136900-4 (Version None)
Quarter: 2009Q1

REPORT INFORMATION
  Report Type: 
  Country: None (occurrence: None)
  Receive Date: 20090330
  Receipt Date: 20090318
  Transmission Date: 20090719
  Serious: Yes (Other)
  Sender: FDA-Public Use
  Company Number: US-AVENTIS-200912372US

PATIENT
  Sex: Female
  Weight: 63.64 kg

DRUGS (4)
  1. LOVENOX [Suspect]
     Dates: start: 20090212, end: 20090313
  2. LOVENOX [Suspect]
     Indication: ANTIPHOSPHOLIPID SYNDROME
     Dates: start: 20090212, end: 20090313
  3. ATENOLOL [Concomitant]
     Dosage: DOSE: UNK
  4. LEVOTHYROXINE [Concomitant]
     Dosage: DOSE: UNK

REACTIONS (3)
  - ILL-DEFINED DISORDER [None]
  - SPEECH DISORDER [None]
  - TRANSIENT ISCHAEMIC ATTACK [None]
